FAERS Safety Report 16016275 (Version 1)
Quarter: 2019Q1

REPORT INFORMATION
  Report Type: Other
  Country: FR (occurrence: FR)
  Receive Date: 20190228
  Receipt Date: 20190228
  Transmission Date: 20190418
  Serious: Yes (Death, Life-Threatening, Hospitalization)
  Sender: FDA-Public Use
  Company Number: FR-GUARDIAN DRUG COMPANY-2063321

PATIENT
  Age: 22 Year
  Sex: Female

DRUGS (1)
  1. CHILDRENS IBUPROFEN [Suspect]
     Active Substance: IBUPROFEN
     Indication: PRODUCT USED FOR UNKNOWN INDICATION
     Route: 065

REACTIONS (9)
  - Acute hepatic failure [Fatal]
  - Sepsis [Fatal]
  - Pneumonia [Unknown]
  - Lactic acidosis [Unknown]
  - Acute kidney injury [Fatal]
  - Respiratory distress [Unknown]
  - Lemierre syndrome [Fatal]
  - Anaemia [Unknown]
  - Multiple organ dysfunction syndrome [Fatal]
